FAERS Safety Report 25233441 (Version 1)
Quarter: 2025Q2

REPORT INFORMATION
  Report Type: Spontaneous
  Country: US (occurrence: US)
  Receive Date: 20250424
  Receipt Date: 20250424
  Transmission Date: 20250716
  Serious: No
  Sender: ABBVIE
  Company Number: US-ABBVIE-6231645

PATIENT
  Age: 40 Year

DRUGS (1)
  1. VRAYLAR [Suspect]
     Active Substance: CARIPRAZINE
     Indication: Schizophrenia
     Route: 048

REACTIONS (4)
  - Injury [Unknown]
  - Drug ineffective [Recovered/Resolved]
  - Adverse drug reaction [Unknown]
  - Fatigue [Unknown]
